FAERS Safety Report 16091716 (Version 1)
Quarter: 2019Q1

REPORT INFORMATION
  Report Type: Spontaneous
  Country: CN (occurrence: CN)
  Receive Date: 20190319
  Receipt Date: 20190319
  Transmission Date: 20190418
  Serious: Yes (Other)
  Sender: FDA-Public Use
  Company Number: CN-ASTRAZENECA-2019SE40180

PATIENT
  Age: 58 Year
  Sex: Male
  Weight: 68 kg

DRUGS (4)
  1. TRADITIONAL CHINESE MEDICINE NOS [Concomitant]
     Active Substance: HERBALS
     Indication: NEOPLASM MALIGNANT
  2. IRESSA [Suspect]
     Active Substance: GEFITINIB
     Indication: NON-SMALL CELL LUNG CANCER
     Route: 048
     Dates: start: 201811
  3. VITAMIN C [Concomitant]
     Active Substance: ASCORBIC ACID
     Dates: start: 201811
  4. NIFEDIPINE. [Concomitant]
     Active Substance: NIFEDIPINE
     Dates: start: 201811

REACTIONS (9)
  - Chromaturia [Unknown]
  - Rash [Recovered/Resolved]
  - Chest pain [Unknown]
  - Non-small cell lung cancer metastatic [Unknown]
  - Metastases to lymph nodes [Unknown]
  - Metastases to bone [Unknown]
  - Skin haemorrhage [Recovered/Resolved]
  - Cancer pain [Unknown]
  - Epistaxis [Recovered/Resolved]
